FAERS Safety Report 5184649-7 (Version None)
Quarter: 2006Q4

REPORT INFORMATION
  Report Type: 
  Country: None (occurrence: None)
  Receive Date: 20061220
  Receipt Date: 20060322
  Transmission Date: 20070319
  Serious: No
  Sender: FDA-Public Use
  Company Number: US-GLAXOSMITHKLINE-A0598565A

PATIENT
  Age: 66 Year
  Sex: Male

DRUGS (2)
  1. NICODERM CQ [Suspect]
     Dates: start: 20060102
  2. COMMIT [Suspect]
     Dates: start: 20060320

REACTIONS (3)
  - MALAISE [None]
  - NAUSEA [None]
  - TENSION [None]
